FAERS Safety Report 8835073 (Version 2)
Quarter: 2012Q4

REPORT INFORMATION
  Report Type: Spontaneous
  Country: US (occurrence: None)
  Receive Date: 20121009
  Receipt Date: 20121214
  Transmission Date: 20130627
  Serious: Yes (Death)
  Sender: FDA-Public Use
  Company Number: UTC-023816

PATIENT
  Age: 58 Year
  Sex: Male
  Weight: 130.3 kg

DRUGS (2)
  1. TYVASO [Suspect]
     Indication: PRIMARY PULMONARY HYPERTENSION
     Route: 055
     Dates: start: 20120412
  2. NON-TYVASO (AMBRISENTAN) [Suspect]
     Dates: start: 20120821

REACTIONS (1)
  - Death [None]
